FAERS Safety Report 12880251 (Version 2)
Quarter: 2016Q4

REPORT INFORMATION
  Report Type: Spontaneous
  Country: EC (occurrence: EC)
  Receive Date: 20161025
  Receipt Date: 20161108
  Transmission Date: 20170207
  Serious: Yes (Other)
  Sender: FDA-Public Use
  Company Number: PHHY2016EC145523

PATIENT
  Sex: Female

DRUGS (6)
  1. TRILEPTAL [Suspect]
     Active Substance: OXCARBAZEPINE
     Dosage: 3 DF, QD
     Route: 048
  2. TRILEPTAL [Suspect]
     Active Substance: OXCARBAZEPINE
     Dosage: 4 DF, QD
     Route: 048
  3. VALCOTE [Concomitant]
     Active Substance: VALPROATE SODIUM
     Indication: SEIZURE
     Dosage: 500 MG, BID
     Route: 048
     Dates: start: 2005
  4. VALCOTE [Concomitant]
     Active Substance: VALPROATE SODIUM
     Dosage: 2 DF, QD
     Route: 048
  5. TRILEPTAL [Suspect]
     Active Substance: OXCARBAZEPINE
     Indication: SEIZURE
     Dosage: 600 MG
     Route: 048
     Dates: start: 2005
  6. VALCOTE [Concomitant]
     Active Substance: VALPROATE SODIUM
     Dosage: 2 DF, QD
     Route: 048

REACTIONS (3)
  - Menstruation irregular [Unknown]
  - Ovarian neoplasm [Unknown]
  - Menstrual disorder [Unknown]
